FAERS Safety Report 8758888 (Version 2)
Quarter: 2012Q4

REPORT INFORMATION
  Report Type: Report from Study
  Country: JP (occurrence: JP)
  Receive Date: 20120829
  Receipt Date: 20120829
  Transmission Date: 20130627
  Serious: Yes (Other)
  Sender: FDA-Public Use
  Company Number: PHHY2012JP067564

PATIENT
  Age: 74 Year
  Sex: Male

DRUGS (6)
  1. AFINITOR [Suspect]
     Indication: PANCREATIC NEUROENDOCRINE TUMOUR
     Dosage: 10 mg, daily
     Route: 048
     Dates: start: 20120410, end: 20120420
  2. AFINITOR [Suspect]
     Dosage: UNK
     Dates: start: 20120427, end: 20120525
  3. AFINITOR [Suspect]
     Dosage: UNK
     Route: 048
     Dates: start: 20120608, end: 20120626
  4. PREDONINE [Concomitant]
     Route: 048
  5. ALLELOCK [Concomitant]
     Route: 048
  6. EBASTEL [Concomitant]
     Route: 048

REACTIONS (1)
  - Generalised oedema [Recovered/Resolved]
